FAERS Safety Report 4399742-6 (Version None)
Quarter: 2004Q3

REPORT INFORMATION
  Report Type: 
  Country: None (occurrence: None)
  Receive Date: 20040714
  Receipt Date: 20040628
  Transmission Date: 20050211
  Serious: Yes (Death, Other)
  Sender: FDA-Public Use
  Company Number: GBS040514966

PATIENT
  Sex: Male

DRUGS (1)
  1. OLANZAPINE [Suspect]
     Route: 048

REACTIONS (2)
  - DISEASE RECURRENCE [None]
  - EPILEPSY [None]
